FAERS Safety Report 19756970 (Version 1)
Quarter: 2021Q3

REPORT INFORMATION
  Report Type: Report from Study
  Country: US (occurrence: US)
  Receive Date: 20210828
  Receipt Date: 20210828
  Transmission Date: 20211014
  Serious: No
  Sender: FDA-Public Use
  Company Number: NVSC2021US194460

PATIENT
  Age: 42 Year
  Sex: Female

DRUGS (3)
  1. KESIMPTA [Suspect]
     Active Substance: OFATUMUMAB
     Indication: CHILLS
     Dosage: 20 MG, OTHER (LOADING DOSE? WEEK 0)
     Route: 058
     Dates: start: 20210722
  2. KESIMPTA [Suspect]
     Active Substance: OFATUMUMAB
     Indication: LETHARGY
  3. KESIMPTA [Suspect]
     Active Substance: OFATUMUMAB
     Indication: HYPERHIDROSIS

REACTIONS (4)
  - Fatigue [Recovering/Resolving]
  - Lethargy [Recovering/Resolving]
  - Hyperhidrosis [Recovering/Resolving]
  - Chills [Recovering/Resolving]

NARRATIVE: CASE EVENT DATE: 20210722
